FAERS Safety Report 5627900-9 (Version None)
Quarter: 2008Q1

REPORT INFORMATION
  Report Type: 
  Country: None (occurrence: None)
  Receive Date: 20080215
  Receipt Date: 20080205
  Transmission Date: 20080703
  Serious: Yes (Other)
  Sender: FDA-Public Use
  Company Number: US-JNJFOC-20080201628

PATIENT
  Sex: Female
  Weight: 113.4 kg

DRUGS (4)
  1. DURAGESIC-100 [Suspect]
     Indication: PAIN
     Route: 062
  2. CYMBALTA [Concomitant]
     Indication: SLEEP DISORDER
     Route: 048
  3. VISTARIL [Concomitant]
     Indication: NAUSEA
     Route: 048
  4. ACIPHEX [Concomitant]
     Route: 048

REACTIONS (13)
  - ANOREXIA [None]
  - ANXIETY [None]
  - APPLICATION SITE ERYTHEMA [None]
  - APPLICATION SITE VESICLES [None]
  - BACK PAIN [None]
  - BEDRIDDEN [None]
  - CHEST PAIN [None]
  - DIABETES MELLITUS [None]
  - DRUG ADMINISTERED AT INAPPROPRIATE SITE [None]
  - NEUROPATHY PERIPHERAL [None]
  - PHARMACEUTICAL PRODUCT COMPLAINT [None]
  - VISUAL DISTURBANCE [None]
  - WEIGHT DECREASED [None]
